FAERS Safety Report 11309436 (Version 1)
Quarter: 2015Q3

REPORT INFORMATION
  Report Type: Spontaneous
  Country: GB (occurrence: GB)
  Receive Date: 20150724
  Receipt Date: 20150724
  Transmission Date: 20151125
  Serious: Yes (Hospitalization)
  Sender: FDA-Public Use
  Company Number: GB-BAYER-2015-382125

PATIENT
  Age: 8 Year
  Sex: Female

DRUGS (1)
  1. ACETYLSALICYLIC ACID (} 100 MG) [Suspect]
     Active Substance: ASPIRIN
     Dosage: 1 DOSE

REACTIONS (4)
  - Cerebral haemorrhage [None]
  - Hydrocephalus [None]
  - Intraventricular haemorrhage [None]
  - Basal ganglia haemorrhage [None]
